FAERS Safety Report 8877161 (Version 1)
Quarter: 2012Q4

REPORT INFORMATION
  Report Type: 
  Country: US (occurrence: US)
  Receive Date: 20121023
  Receipt Date: 20121023
  Transmission Date: 20130627
  Serious: No
  Sender: FDA-Public Use
  Company Number: US-AMGEN-USASP2012014486

PATIENT
  Age: 60 Year
  Sex: Female
  Weight: 63.49 kg

DRUGS (8)
  1. ENBREL [Suspect]
     Indication: PSORIATIC ARTHROPATHY
     Dosage: 50 mg, qwk
     Route: 058
     Dates: start: 20120126
  2. IBUPROFEN [Concomitant]
     Dosage: 200 mg, UNK
  3. DOVONEX [Concomitant]
     Dosage: UNK
  4. TRIAMCINOLON                       /00031901/ [Concomitant]
     Dosage: UNK
  5. CALCIUM +D                         /00188401/ [Concomitant]
     Dosage: UNK
  6. AMLODIPINE [Concomitant]
     Dosage: 2.5 mg, UNK
  7. ADVAIR [Concomitant]
     Dosage: UNK
  8. VENTOLIN                           /00139501/ [Concomitant]
     Dosage: UNK

REACTIONS (6)
  - Psoriatic arthropathy [Unknown]
  - Asthma [Unknown]
  - Oropharyngeal pain [Unknown]
  - Headache [Unknown]
  - Injection site bruising [Unknown]
  - Nasopharyngitis [Unknown]
